FAERS Safety Report 13973171 (Version 1)
Quarter: 2017Q3

REPORT INFORMATION
  Report Type: Spontaneous
  Country: US (occurrence: US)
  Receive Date: 20170914
  Receipt Date: 20170914
  Transmission Date: 20171128
  Serious: Yes (Other)
  Sender: FDA-Public Use
  Company Number: US-JNJFOC-20170908596

PATIENT
  Sex: Male

DRUGS (1)
  1. LISTERINE ANTISEPTIC MOUTHWASH [Suspect]
     Active Substance: EUCALYPTOL\MENTHOL\METHYL SALICYLATE\THYMOL
     Indication: EUPHORIC MOOD
     Route: 048

REACTIONS (5)
  - Blindness [Unknown]
  - Product formulation issue [Unknown]
  - Intentional product misuse [Unknown]
  - Incorrect route of drug administration [Unknown]
  - Hallucination [Unknown]
